FAERS Safety Report 10438296 (Version 1)
Quarter: 2014Q3

REPORT INFORMATION
  Report Type: Spontaneous
  Country: US (occurrence: US)
  Receive Date: 20140908
  Receipt Date: 20140908
  Transmission Date: 20150326
  Serious: Yes (Hospitalization)
  Sender: FDA-Public Use
  Company Number: US-BRISTOL-MYERS SQUIBB COMPANY-19140797

PATIENT
  Age: 47 Year
  Sex: Female

DRUGS (2)
  1. BENZTROPINE [Concomitant]
     Active Substance: BENZTROPINE
  2. ABILIFY [Suspect]
     Active Substance: ARIPIPRAZOLE
     Dosage: ON 1/13 INCREASED TO 22.5MG ?ON 3/12 INCREASED TO 30MG.

REACTIONS (1)
  - Oromandibular dystonia [Unknown]
